FAERS Safety Report 16345058 (Version 2)
Quarter: 2019Q3

REPORT INFORMATION
  Report Type: Spontaneous
  Country: GB (occurrence: GB)
  Receive Date: 20190523
  Receipt Date: 20190715
  Transmission Date: 20191004
  Serious: Yes (Other)
  Sender: FDA-Public Use
  Company Number: GB-SA-2019SA134032

PATIENT
  Age: 52 Year
  Sex: Male
  Weight: 93.8 kg

DRUGS (5)
  1. MYOZYME [Suspect]
     Active Substance: ALGLUCOSIDASE ALFA
     Indication: GLYCOGEN STORAGE DISEASE TYPE II
     Dosage: UNK
     Route: 041
     Dates: start: 20180920
  2. MYOZYME [Suspect]
     Active Substance: ALGLUCOSIDASE ALFA
     Dosage: UNK
     Route: 041
     Dates: start: 20190605
  3. PARACETAMOL [Concomitant]
     Active Substance: ACETAMINOPHEN
     Indication: PREMEDICATION
     Dosage: 1 G 1 HOUR PRIOR TO INFUSION, UNK
     Route: 065
     Dates: start: 20190320, end: 20190605
  4. CHLORPHENAMINE [Concomitant]
     Active Substance: CHLORPHENIRAMINE MALEATE
     Indication: PREMEDICATION
     Dosage: 4 MG 1 HOUR PRIOR TO INFUSION, UNK
     Route: 065
     Dates: start: 20190320, end: 20190605
  5. HYDROCORTISONE. [Concomitant]
     Active Substance: HYDROCORTISONE
     Indication: PREMEDICATION
     Dosage: 20 MG 1 HOUR PRIOR TO INFUSION, UNK
     Route: 065
     Dates: start: 20190425, end: 20190605

REACTIONS (2)
  - Immune-mediated adverse reaction [Unknown]
  - Pruritus [Not Recovered/Not Resolved]

NARRATIVE: CASE EVENT DATE: 20190304
